FAERS Safety Report 8600734 (Version 2)
Quarter: 2013Q4

REPORT INFORMATION
  Report Type: Report from Study
  Country: JP (occurrence: JP)
  Receive Date: 20120606
  Receipt Date: 20131209
  Transmission Date: 20140711
  Serious: Yes (Other)
  Sender: FDA-Public Use
  Company Number: PHHY2012JP047385

PATIENT
  Age: 24 Year
  Sex: Female
  Weight: 46 kg

DRUGS (28)
  1. LEPONEX / CLOZARIL [Suspect]
     Indication: SCHIZOPHRENIA
     Dosage: 350 MG, DAILY
     Route: 048
     Dates: start: 20120229
  2. LEPONEX / CLOZARIL [Suspect]
     Dosage: 12.5 MG, UNK
     Route: 048
     Dates: start: 20120301
  3. LEPONEX / CLOZARIL [Suspect]
     Dosage: 25 MG, UNK
     Route: 048
     Dates: start: 20120302
  4. LEPONEX / CLOZARIL [Suspect]
     Dosage: 50 MG, UNK
     Route: 048
     Dates: start: 20120305
  5. LEPONEX / CLOZARIL [Suspect]
     Dosage: 75 MG, UNK
     Route: 048
     Dates: start: 20120308
  6. LEPONEX / CLOZARIL [Suspect]
     Dosage: 100 MG, UNK
     Route: 048
     Dates: start: 20120311
  7. LEPONEX / CLOZARIL [Suspect]
     Dosage: 125 MG, UNK
     Route: 048
     Dates: start: 20120314
  8. LEPONEX / CLOZARIL [Suspect]
     Dosage: 150 MG, UNK
     Route: 048
     Dates: start: 20130318
  9. LEPONEX / CLOZARIL [Suspect]
     Dosage: 175 MG, UNK
     Route: 048
     Dates: start: 20120320
  10. LEPONEX / CLOZARIL [Suspect]
     Dosage: 200 MG, UNK
     Route: 048
     Dates: start: 20120323
  11. LEPONEX / CLOZARIL [Suspect]
     Dosage: 225 MG, UNK
     Route: 048
     Dates: start: 20120326
  12. LEPONEX / CLOZARIL [Suspect]
     Dosage: 250 MG, UNK
     Route: 048
     Dates: start: 20120403
  13. LEPONEX / CLOZARIL [Suspect]
     Dosage: 275 MG, UNK
     Route: 048
     Dates: start: 20120410
  14. LEPONEX / CLOZARIL [Suspect]
     Dosage: 300 MG, UNK
     Route: 048
     Dates: start: 20120417
  15. LEPONEX / CLOZARIL [Suspect]
     Dosage: 325 MG, UNK
     Route: 048
     Dates: start: 20120516
  16. LEPONEX / CLOZARIL [Suspect]
     Dosage: 350 MG, UNK
     Route: 048
     Dates: start: 20120523
  17. SERENACE [Concomitant]
     Dosage: 18 MG, UNK
     Route: 048
     Dates: start: 20120229
  18. SERENACE [Concomitant]
     Dosage: 12 MG, UNK
  19. SERENACE [Concomitant]
     Dosage: 09 MG, UNK
     Route: 048
     Dates: end: 20120325
  20. RISPERIDONE [Concomitant]
     Dosage: 6 MG, UNK
     Route: 048
     Dates: start: 20120229
  21. RISPERIDONE [Concomitant]
     Dosage: 3 MG, UNK
     Route: 048
     Dates: end: 20120313
  22. CONTOMIN [Concomitant]
     Dosage: 200 MG, UNK
     Route: 048
     Dates: start: 20120229
  23. CONTOMIN [Concomitant]
     Dosage: 100 MG, UNK
     Route: 048
     Dates: end: 20120322
  24. SELENICA R [Concomitant]
     Indication: SCHIZOPHRENIA, PARANOID TYPE
     Dosage: 800 MG, UNK
     Route: 048
     Dates: start: 20120209, end: 20120229
  25. ROZEREM [Concomitant]
     Indication: SCHIZOPHRENIA, PARANOID TYPE
     Dosage: 8 MG, UNK
     Route: 048
     Dates: start: 20120229
  26. EURODIN [Concomitant]
     Indication: SCHIZOPHRENIA, PARANOID TYPE
     Dosage: 2 MG, UNK
     Route: 048
     Dates: start: 20120229
  27. BICAMOL [Concomitant]
     Indication: PARKINSONISM
     Dosage: 6 MG, UNK
     Route: 048
     Dates: start: 20120229
  28. AKINETON [Concomitant]
     Indication: PARKINSONISM
     Dosage: 2 MG, UNK
     Route: 048
     Dates: start: 20120229, end: 20120326

REACTIONS (6)
  - Intentional self-injury [Recovered/Resolved]
  - Suicide attempt [Recovered/Resolved]
  - White blood cell count decreased [Recovered/Resolved]
  - Platelet count decreased [Recovered/Resolved]
  - Heart rate increased [Recovered/Resolved]
  - Haemoglobin decreased [Not Recovered/Not Resolved]
